FAERS Safety Report 13268944 (Version 5)
Quarter: 2020Q3

REPORT INFORMATION
  Report Type: Report from Study
  Country: RU (occurrence: RU)
  Receive Date: 20170224
  Receipt Date: 20170628
  Transmission Date: 20201104
  Serious: Yes (Death)
  Sender: FDA-Public Use
  Company Number: RU-ROCHE-1896424

PATIENT
  Age: 54 Year
  Sex: Male
  Weight: 59 kg

DRUGS (1)
  1. ALECTINIB. [Suspect]
     Active Substance: ALECTINIB
     Indication: NON-SMALL CELL LUNG CANCER
     Dosage: MOST RECENT DOSE PRIOR TO THE SAE: 14/FEB/2017
     Route: 048
     Dates: start: 20170119

REACTIONS (1)
  - Death [Fatal]

NARRATIVE: CASE EVENT DATE: 20170214
